FAERS Safety Report 17825030 (Version 3)
Quarter: 2020Q3

REPORT INFORMATION
  Report Type: Report from Study
  Country: US (occurrence: US)
  Receive Date: 20200526
  Receipt Date: 20200915
  Transmission Date: 20201102
  Serious: No
  Sender: FDA-Public Use
  Company Number: US-SA-2020SA134259

PATIENT

DRUGS (2)
  1. DUPILUMAB [Suspect]
     Active Substance: DUPILUMAB
     Indication: DERMATITIS ATOPIC
     Dosage: 600 MG, 1X
     Route: 058
  2. DUPILUMAB [Suspect]
     Active Substance: DUPILUMAB
     Dosage: 300 MG, QOW
     Route: 058
     Dates: start: 20200226, end: 202008

REACTIONS (8)
  - Vision blurred [Recovered/Resolved]
  - Eye inflammation [Unknown]
  - Sinus disorder [Recovered/Resolved]
  - Respiratory tract congestion [Recovered/Resolved]
  - Dyspnoea [Recovered/Resolved]
  - Head discomfort [Not Recovered/Not Resolved]
  - Rebound eczema [Not Recovered/Not Resolved]
  - Feeling abnormal [Unknown]

NARRATIVE: CASE EVENT DATE: 2020
